FAERS Safety Report 26124162 (Version 1)
Quarter: 2025Q4

REPORT INFORMATION
  Report Type: Spontaneous
  Country: US (occurrence: US)
  Receive Date: 20251205
  Receipt Date: 20251205
  Transmission Date: 20260117
  Serious: No
  Sender: ACCORD
  Company Number: US-Accord-503393

PATIENT

DRUGS (1)
  1. LEVOTHYROXINE [Suspect]
     Active Substance: LEVOTHYROXINE
     Indication: Product used for unknown indication
     Dosage: STRENGTH: 50 MCG

REACTIONS (2)
  - Anxiety [Unknown]
  - Hot flush [Unknown]
